FAERS Safety Report 9319488 (Version 7)
Quarter: 2014Q3

REPORT INFORMATION
  Report Type: Spontaneous
  Country: US (occurrence: US)
  Receive Date: 20130530
  Receipt Date: 20140822
  Transmission Date: 20150326
  Serious: Yes (Hospitalization, Other)
  Sender: FDA-Public Use
  Company Number: US-GLAXOSMITHKLINE-A0990786A

PATIENT
  Age: 74 Year
  Sex: Male

DRUGS (7)
  1. ANTIBIOTICS [Concomitant]
     Active Substance: UNSPECIFIED INGREDIENT
  2. BLOOD PRESSURE MEDICATION [Suspect]
     Active Substance: UNSPECIFIED INGREDIENT
     Indication: BLOOD PRESSURE
     Route: 065
  3. FLOLAN [Suspect]
     Active Substance: EPOPROSTENOL SODIUM
     Indication: COR PULMONALE CHRONIC
     Dosage: 19NGKM CONTINUOUS
     Route: 042
     Dates: start: 20061023
  4. REVATIO [Concomitant]
     Active Substance: SILDENAFIL CITRATE
  5. BUMEX [Suspect]
     Active Substance: BUMETANIDE
     Indication: DIURETIC THERAPY
  6. WARFARIN [Concomitant]
     Active Substance: WARFARIN
  7. DILTIAZEM [Concomitant]
     Active Substance: DILTIAZEM

REACTIONS (16)
  - Malaise [Recovered/Resolved]
  - Anaemia [Recovered/Resolved]
  - Asthenia [Recovered/Resolved]
  - Transfusion [Recovered/Resolved]
  - Catheter site discharge [Unknown]
  - Pseudomonas infection [Unknown]
  - Bacterial infection [Unknown]
  - Device dislocation [Unknown]
  - Blood pressure abnormal [Recovered/Resolved]
  - Dehydration [Recovered/Resolved]
  - Injection site infection [Recovered/Resolved]
  - Intestinal haemorrhage [Recovered/Resolved]
  - Post procedural haemorrhage [Recovered/Resolved]
  - Catheter site erythema [Unknown]
  - Pain in jaw [Not Recovered/Not Resolved]
  - Fatigue [Recovered/Resolved]

NARRATIVE: CASE EVENT DATE: 20120816
